FAERS Safety Report 5197076-3 (Version None)
Quarter: 2006Q4

REPORT INFORMATION
  Report Type: 
  Country: None (occurrence: None)
  Receive Date: 20061220
  Receipt Date: 20061206
  Transmission Date: 20070319
  Serious: Yes (Other)
  Sender: FDA-Public Use
  Company Number: THYM-11187

PATIENT

DRUGS (1)
  1. THYMOGLOBULIN [Suspect]
     Indication: BONE MARROW TRANSPLANT
     Dates: start: 20060101

REACTIONS (1)
  - INTERSTITIAL LUNG DISEASE [None]
